FAERS Safety Report 11544167 (Version 1)
Quarter: 2015Q3

REPORT INFORMATION
  Report Type: Spontaneous
  Country: BR (occurrence: BR)
  Receive Date: 20150924
  Receipt Date: 20150924
  Transmission Date: 20151125
  Serious: Yes (Other)
  Sender: FDA-Public Use
  Company Number: BR-009507513-1509BRA011242

PATIENT
  Age: 64 Year
  Sex: Female
  Weight: 58 kg

DRUGS (1)
  1. VYTORIN [Suspect]
     Active Substance: EZETIMIBE\SIMVASTATIN
     Indication: BLOOD CHOLESTEROL ABNORMAL
     Dosage: 10/20 MG, QD
     Route: 048
     Dates: start: 201506, end: 20150916

REACTIONS (2)
  - Ocular discomfort [Not Recovered/Not Resolved]
  - Deafness unilateral [Not Recovered/Not Resolved]

NARRATIVE: CASE EVENT DATE: 201506
